FAERS Safety Report 17236430 (Version 3)
Quarter: 2020Q1

REPORT INFORMATION
  Report Type: Spontaneous
  Country: US (occurrence: US)
  Receive Date: 20200106
  Receipt Date: 20200312
  Transmission Date: 20200409
  Serious: Yes (Death, Hospitalization, Other)
  Sender: FDA-Public Use
  Company Number: US-CATALYST PHARMACEUTICALS, INC-2019CAT00696

PATIENT
  Age: 76 Year
  Sex: Female
  Weight: 49.89 kg

DRUGS (9)
  1. GAMMAGARD [Concomitant]
     Active Substance: HUMAN IMMUNOGLOBULIN G
  2. FIRDAPSE [Suspect]
     Active Substance: AMIFAMPRIDINE
     Indication: MYASTHENIC SYNDROME
     Dosage: 10 MG, 2X/DAY
     Route: 048
     Dates: start: 20191116, end: 20191210
  3. CHEMOTHERAPY [Suspect]
     Active Substance: UNSPECIFIED INGREDIENT
  4. FIRDAPSE [Suspect]
     Active Substance: AMIFAMPRIDINE
     Dosage: 20 MG, 1X/DAY (MORNING)
     Route: 048
     Dates: start: 20191211, end: 201912
  5. FIRDAPSE [Suspect]
     Active Substance: AMIFAMPRIDINE
     Dosage: 10 MG, 4X/DAY
     Route: 048
     Dates: end: 20200305
  6. FIRDAPSE [Suspect]
     Active Substance: AMIFAMPRIDINE
     Dosage: 30 MG/DAY
  7. FIRDAPSE [Suspect]
     Active Substance: AMIFAMPRIDINE
     Dosage: 35 MG/DAY
  8. FIRDAPSE [Suspect]
     Active Substance: AMIFAMPRIDINE
     Dosage: 10 MG, 2X/DAY
     Route: 048
     Dates: start: 201912
  9. FIRDAPSE [Suspect]
     Active Substance: AMIFAMPRIDINE
     Dosage: 15 MG, 1X/DAY (NIGHT)
     Route: 048
     Dates: start: 20191211, end: 201912

REACTIONS (16)
  - Pancytopenia [Recovering/Resolving]
  - Complication associated with device [Recovered/Resolved]
  - Asthenia [Not Recovered/Not Resolved]
  - Hypotension [Recovered/Resolved]
  - Hypertension [Recovered/Resolved]
  - Diverticulum [Not Recovered/Not Resolved]
  - Malnutrition [Not Recovered/Not Resolved]
  - Pneumonia [Recovering/Resolving]
  - Alopecia [Not Recovered/Not Resolved]
  - Hepatic cyst [Not Recovered/Not Resolved]
  - Sepsis [Recovered/Resolved]
  - Cerebral atrophy [Not Recovered/Not Resolved]
  - Hyperglycaemia [Recovering/Resolving]
  - Chest pain [Not Recovered/Not Resolved]
  - Cardiac arrest [Fatal]
  - Acute kidney injury [Recovered/Resolved]

NARRATIVE: CASE EVENT DATE: 2019
